FAERS Safety Report 10189106 (Version 1)
Quarter: 2014Q2

REPORT INFORMATION
  Report Type: Spontaneous
  Country: BE (occurrence: BE)
  Receive Date: 20140522
  Receipt Date: 20140522
  Transmission Date: 20141212
  Serious: Yes (Other)
  Sender: FDA-Public Use
  Company Number: BE-PFIZER INC-2014135459

PATIENT
  Sex: Female

DRUGS (1)
  1. TORISEL [Suspect]
     Dosage: 25 MG, WEEKLY
     Dates: start: 2012

REACTIONS (1)
  - Renal disorder [Unknown]
